FAERS Safety Report 7973806-X (Version None)
Quarter: 2011Q4

REPORT INFORMATION
  Report Type: 
  Country: None (occurrence: None)
  Receive Date: 20111213
  Receipt Date: 20111201
  Transmission Date: 20120403
  Serious: Yes (Other)
  Sender: FDA-Public Use
  Company Number: CA-ELI_LILLY_AND_COMPANY-CA201112000190

PATIENT
  Sex: Male

DRUGS (1)
  1. ZYPREXA [Suspect]
     Dosage: 1 DF, UNK

REACTIONS (4)
  - CEREBROVASCULAR ACCIDENT [None]
  - APPETITE DISORDER [None]
  - WEIGHT INCREASED [None]
  - BLINDNESS [None]
